FAERS Safety Report 16451196 (Version 1)
Quarter: 2019Q3

REPORT INFORMATION
  Report Type: Spontaneous
  Country: US (occurrence: US)
  Receive Date: 20190618
  Receipt Date: 20190618
  Transmission Date: 20191004
  Serious: Yes (Disabling, Other)
  Sender: FDA-Public Use
  Company Number: None

PATIENT
  Age: 26 Year
  Sex: Female

DRUGS (1)
  1. LUPRON DEPOT [Suspect]
     Active Substance: LEUPROLIDE ACETATE
     Indication: ENDOMETRIOSIS
     Dates: start: 20180717, end: 20181016

REACTIONS (8)
  - Drug ineffective [None]
  - Tooth disorder [None]
  - Multiple sclerosis [None]
  - Central nervous system lesion [None]
  - Hypophagia [None]
  - Visual impairment [None]
  - Insomnia [None]
  - Pain [None]

NARRATIVE: CASE EVENT DATE: 20180717
